FAERS Safety Report 7573113-3 (Version None)
Quarter: 2011Q2

REPORT INFORMATION
  Report Type: 
  Country: None (occurrence: None)
  Receive Date: 20110627
  Receipt Date: 20110621
  Transmission Date: 20111010
  Serious: Yes (Other)
  Sender: FDA-Public Use
  Company Number: US-BRISTOL-MYERS SQUIBB COMPANY-15846827

PATIENT
  Age: 40 Year
  Sex: Female

DRUGS (4)
  1. MONOPRIL [Suspect]
  2. BENICAR [Suspect]
  3. LISINOPRIL [Suspect]
  4. TEKTURNA [Suspect]
     Dosage: TEKTURNA HCT

REACTIONS (7)
  - APHASIA [None]
  - HYPERSENSITIVITY [None]
  - DYSURIA [None]
  - VISION BLURRED [None]
  - ORAL PAIN [None]
  - INTESTINAL FUNCTIONAL DISORDER [None]
  - RESPIRATORY TRACT INFLAMMATION [None]
